FAERS Safety Report 6825783 (Version 2)
Quarter: 2017Q3

REPORT INFORMATION
  Report Type: Spontaneous
  Country: NO (occurrence: NO)
  Receive Date: 20081128
  Receipt Date: 20170825
  Transmission Date: 20171128
  Serious: Yes (Hospitalization)
  Sender: FDA-Public Use
  Company Number: NO-PFIZER INC-2008099230

PATIENT
  Age: 31 Year
  Sex: Female

DRUGS (1)
  1. CYTOTEC [Suspect]
     Active Substance: MISOPROSTOL
     Indication: ABORTION INDUCED
     Dosage: 400 UG, UNK
     Dates: start: 20080225, end: 20080226

REACTIONS (2)
  - Off label use [Recovered/Resolved]
  - Uterine rupture [Recovered/Resolved]
